FAERS Safety Report 4291640-1 (Version None)
Quarter: 2004Q1

REPORT INFORMATION
  Report Type: 
  Country: None (occurrence: None)
  Receive Date: 20040211
  Receipt Date: 20031031
  Transmission Date: 20041129
  Serious: No
  Sender: FDA-Public Use
  Company Number: US-GLAXOSMITHKLINE-A0432426A

PATIENT
  Age: 29 Year
  Sex: Male
  Weight: 100 kg

DRUGS (2)
  1. IMITREX [Suspect]
     Indication: MIGRAINE
     Dosage: 6MG UNKNOWN
     Route: 058
     Dates: start: 20031015
  2. PROPRANOLOL [Concomitant]
     Dosage: 40MG TWICE PER DAY
     Route: 065
     Dates: start: 20020501

REACTIONS (1)
  - BURNING SENSATION [None]
